FAERS Safety Report 8796390 (Version 1)
Quarter: 2012Q4

REPORT INFORMATION
  Report Type: 
  Country: BR (occurrence: BR)
  Receive Date: 20120920
  Receipt Date: 20120920
  Transmission Date: 20130627
  Serious: Yes (Life-Threatening, Hospitalization, Other)
  Sender: FDA-Public Use
  Company Number: PHHY2012BR081240

PATIENT
  Age: 84 Year
  Sex: Male

DRUGS (3)
  1. TRILEPTAL [Suspect]
     Indication: NERVOUS SYSTEM DISORDER
     Dosage: 900 mg per day (1 and a half tablets, three times a day)
     Dates: start: 2004
  2. TRILEPTAL [Suspect]
     Dosage: UNK UKN, UNK
     Route: 051
  3. ANTICOAGULANTS [Concomitant]
     Dosage: UNK UKN, UNK

REACTIONS (6)
  - Cerebrovascular accident [Unknown]
  - Pneumonia [Unknown]
  - Gastrointestinal bacterial infection [Unknown]
  - Nosocomial infection [Unknown]
  - Gastrointestinal necrosis [Unknown]
  - Vomiting [Recovering/Resolving]
